FAERS Safety Report 25765887 (Version 1)
Quarter: 2025Q3

REPORT INFORMATION
  Report Type: Spontaneous
  Country: US (occurrence: US)
  Receive Date: 20250905
  Receipt Date: 20250905
  Transmission Date: 20251021
  Serious: No
  Sender: DOMPE FARMACEUTICI
  Company Number: US-FARMAPROD-202407-2587

PATIENT
  Sex: Female
  Weight: 57.6 kg

DRUGS (22)
  1. OXERVATE [Suspect]
     Active Substance: CENEGERMIN-BKBJ
     Indication: Neurotrophic keratopathy
     Route: 047
     Dates: start: 20230406, end: 20230601
  2. OXERVATE [Suspect]
     Active Substance: CENEGERMIN-BKBJ
     Route: 047
     Dates: start: 20240618
  3. VITAMIN D3 [Concomitant]
     Active Substance: CHOLECALCIFEROL
  4. PRESERVISION AREDS 2148-113 [Concomitant]
  5. FISH OIL\OMEGA-3 FATTY ACIDS [Concomitant]
     Active Substance: FISH OIL\OMEGA-3 FATTY ACIDS
  6. CALTRATE 600+D PLUS [Concomitant]
  7. PREDNISOLONE [Concomitant]
     Active Substance: PREDNISOLONE
  8. CEFDINIR [Concomitant]
     Active Substance: CEFDINIR
  9. ALREX [Concomitant]
     Active Substance: LOTEPREDNOL ETABONATE
  10. OFLOXACIN [Concomitant]
     Active Substance: OFLOXACIN
  11. FISH OIL [Concomitant]
     Active Substance: FISH OIL
  12. CRANBERRY [Concomitant]
     Active Substance: CRANBERRY
  13. EZETIMIBE [Concomitant]
     Active Substance: EZETIMIBE
  14. SIMVASTATIN [Concomitant]
     Active Substance: SIMVASTATIN
  15. CEPHALEXIN [Concomitant]
     Active Substance: CEPHALEXIN
  16. GABAPENTIN [Concomitant]
     Active Substance: GABAPENTIN
  17. CALTRATE 600 PLUS D3 [Concomitant]
  18. CENTRUM SILVER .4-300-250 [Concomitant]
  19. LOSARTAN POTASSIUM [Concomitant]
     Active Substance: LOSARTAN POTASSIUM
  20. ACYCLOVIR [Concomitant]
     Active Substance: ACYCLOVIR
  21. ASPIRIN EC 81 [Concomitant]
  22. ATENOLOL [Concomitant]
     Active Substance: ATENOLOL

REACTIONS (2)
  - Therapy interrupted [Unknown]
  - Eye irritation [Unknown]
